FAERS Safety Report 20325470 (Version 4)
Quarter: 2022Q1

REPORT INFORMATION
  Report Type: Report from Study
  Country: None (occurrence: ES)
  Receive Date: 20220112
  Receipt Date: 20220323
  Transmission Date: 20220423
  Serious: Yes (Hospitalization)
  Sender: FDA-Public Use
  Company Number: ES-AKCEA THERAPEUTICS, INC.-2021IS001891

PATIENT
  Age: 79 Year
  Sex: Male
  Weight: 80.182 kg

DRUGS (9)
  1. TEGSEDI [Suspect]
     Active Substance: INOTERSEN SODIUM
     Indication: Hereditary neuropathic amyloidosis
     Route: 058
     Dates: start: 20190601
  2. DEVICE [Suspect]
     Active Substance: DEVICE
  3. LERCANIDIPINE [Concomitant]
     Active Substance: LERCANIDIPINE
     Route: 065
  4. CYANOCOBALAMIN [Concomitant]
     Active Substance: CYANOCOBALAMIN
     Route: 065
  5. RAMIPRIL [Concomitant]
     Active Substance: RAMIPRIL
     Route: 065
  6. PREGABALIN [Concomitant]
     Active Substance: PREGABALIN
     Route: 065
  7. RETINOL [Concomitant]
     Active Substance: RETINOL
     Route: 065
  8. TEGSEDI [Suspect]
     Active Substance: INOTERSEN SODIUM
     Route: 065
     Dates: start: 20220110
  9. TEGSEDI [Suspect]
     Active Substance: INOTERSEN SODIUM
     Route: 065
     Dates: start: 20210531

REACTIONS (10)
  - Anaemia megaloblastic [Recovering/Resolving]
  - Coombs positive haemolytic anaemia [Recovering/Resolving]
  - Haemoglobin decreased [Not Recovered/Not Resolved]
  - Haematocrit decreased [Not Recovered/Not Resolved]
  - Transfusion reaction [Recovered/Resolved]
  - Red blood cell count decreased [Not Recovered/Not Resolved]
  - Mean cell volume increased [Not Recovered/Not Resolved]
  - Blood creatinine decreased [Not Recovered/Not Resolved]
  - Blood sodium decreased [Not Recovered/Not Resolved]
  - Prealbumin decreased [Not Recovered/Not Resolved]

NARRATIVE: CASE EVENT DATE: 20211004
